FAERS Safety Report 6676205-6 (Version None)
Quarter: 2010Q2

REPORT INFORMATION
  Report Type: 
  Country: None (occurrence: None)
  Receive Date: 20100412
  Receipt Date: 20100401
  Transmission Date: 20101027
  Serious: Yes (Other)
  Sender: FDA-Public Use
  Company Number: MX-JNJFOC-20070400391

PATIENT
  Age: 36 Year
  Sex: Female
  Weight: 55 kg

DRUGS (3)
  1. ELEQUINE [Suspect]
     Indication: URINARY TRACT INFECTION
     Route: 042
  2. ELEQUINE [Suspect]
     Route: 042
  3. ELEQUINE [Suspect]
     Route: 048

REACTIONS (4)
  - HYPOACUSIS [None]
  - NAUSEA [None]
  - PARAESTHESIA [None]
  - VERTIGO [None]
